FAERS Safety Report 5844629-2 (Version None)
Quarter: 2008Q3

REPORT INFORMATION
  Report Type: 
  Country: None (occurrence: None)
  Receive Date: 20080814
  Receipt Date: 20080804
  Transmission Date: 20090109
  Serious: Yes (Hospitalization)
  Sender: FDA-Public Use
  Company Number: US-JNJFOC-20080407391

PATIENT
  Sex: Female
  Weight: 90.72 kg

DRUGS (6)
  1. REMICADE [Suspect]
     Indication: RHEUMATOID ARTHRITIS
     Route: 042
  2. HYPERTENSION MEDICATION [Concomitant]
  3. SYNTHROID [Concomitant]
     Indication: HYPOTHYROIDISM
  4. WATER PILL [Concomitant]
  5. CRESTOR [Concomitant]
  6. RANITIDINE [Concomitant]

REACTIONS (3)
  - DIABETES MELLITUS [None]
  - RESPIRATORY DISTRESS [None]
  - SINUS DISORDER [None]
